FAERS Safety Report 6934094-6 (Version None)
Quarter: 2010Q3

REPORT INFORMATION
  Report Type: 
  Country: None (occurrence: None)
  Receive Date: 20100820
  Receipt Date: 20100816
  Transmission Date: 20110219
  Serious: Yes (Hospitalization)
  Sender: FDA-Public Use
  Company Number: US-MERCK-1008USA02007

PATIENT
  Age: 55 Year
  Sex: Male

DRUGS (2)
  1. ZOCOR [Suspect]
     Route: 048
     Dates: start: 20090401, end: 20100401
  2. NIASPAN [Suspect]
     Route: 065
     Dates: start: 20090401, end: 20100401

REACTIONS (2)
  - RENAL FAILURE [None]
  - RHABDOMYOLYSIS [None]
